FAERS Safety Report 9789746 (Version 1)
Quarter: 2013Q4

REPORT INFORMATION
  Report Type: Spontaneous
  Country: US (occurrence: None)
  Receive Date: 20131227
  Receipt Date: 20131227
  Transmission Date: 20140711
  Serious: Yes (Hospitalization, Other)
  Sender: FDA-Public Use
  Company Number: US-SEPTODONT-201301629

PATIENT
  Age: 36 Year
  Sex: Female
  Weight: 52 kg

DRUGS (1)
  1. MEPIVACAINE HYDROCHLORIDE [Suspect]
     Indication: LOCAL ANAESTHESIA
     Route: 004
     Dates: start: 20131125, end: 20131125

REACTIONS (4)
  - Dyspnoea [None]
  - Hypoaesthesia [None]
  - Hypoaesthesia [None]
  - Headache [None]
